FAERS Safety Report 6569516-6 (Version None)
Quarter: 2010Q1

REPORT INFORMATION
  Report Type: 
  Country: None (occurrence: None)
  Receive Date: 20100204
  Receipt Date: 20100125
  Transmission Date: 20100710
  Serious: Yes (Hospitalization, Other)
  Sender: FDA-Public Use
  Company Number: US-ELI_LILLY_AND_COMPANY-US200912000568

PATIENT
  Sex: Female

DRUGS (6)
  1. FORTEO [Suspect]
     Indication: OSTEOPOROSIS
     Dosage: 20 UG, DAILY (1/D)
     Dates: start: 20091002
  2. POTASSIUM [Concomitant]
     Dosage: UNK, UNKNOWN
  3. COUMADIN [Concomitant]
     Dosage: UNK, UNKNOWN
  4. LASIX [Concomitant]
     Dosage: UNK, UNKNOWN
  5. NIFEDIAC [Concomitant]
     Dosage: UNK, UNKNOWN
  6. SYNTHROID [Concomitant]
     Dosage: UNK, UNKNOWN

REACTIONS (8)
  - ASTHENIA [None]
  - CONFUSIONAL STATE [None]
  - DYSPNOEA [None]
  - FATIGUE [None]
  - FEELING ABNORMAL [None]
  - HEART VALVE INCOMPETENCE [None]
  - LUNG DISORDER [None]
  - OEDEMA PERIPHERAL [None]
